FAERS Safety Report 16712487 (Version 1)
Quarter: 2019Q3

REPORT INFORMATION
  Report Type: Spontaneous
  Country: JP (occurrence: JP)
  Receive Date: 20190816
  Receipt Date: 20190816
  Transmission Date: 20191004
  Serious: Yes (Other)
  Sender: FDA-Public Use
  Company Number: JP-BAUSCH-BL-2019-023574

PATIENT
  Age: 62 Year
  Sex: Female

DRUGS (3)
  1. ALPHAGAN P [Concomitant]
     Active Substance: BRIMONIDINE TARTRATE
     Indication: PRODUCT USED FOR UNKNOWN INDICATION
     Dosage: BEGINNING OF 2019, BOTH EYES
     Route: 047
     Dates: start: 2019
  2. MYTEAR [Concomitant]
     Indication: DRY EYE
     Dosage: BOTH EYES
     Route: 047
     Dates: start: 201908
  3. MIKELAN LA OPHTHALMIC SOLUTION 1% (CARTEOLOL HYDROCHLORIDE) [Suspect]
     Active Substance: CARTEOLOL HYDROCHLORIDE
     Indication: GLAUCOMA
     Dosage: IN THE MORNING (BOTH EYES)
     Route: 047

REACTIONS (3)
  - Ocular hyperaemia [Unknown]
  - Cataract [Unknown]
  - Dry eye [Unknown]

NARRATIVE: CASE EVENT DATE: 2019
